FAERS Safety Report 10880720 (Version 3)
Quarter: 2015Q2

REPORT INFORMATION
  Report Type: Spontaneous
  Country: SE (occurrence: SE)
  Receive Date: 20150303
  Receipt Date: 20150414
  Transmission Date: 20150821
  Serious: Yes (Other)
  Sender: FDA-Public Use
  Company Number: SE-BIOGENIDEC-2015BI021335

PATIENT
  Age: 30 Year

DRUGS (12)
  1. LIVOSTIN [Concomitant]
     Active Substance: LEVOCABASTINE HYDROCHLORIDE
  2. ALVEDON [Concomitant]
     Active Substance: ACETAMINOPHEN
  3. GILENYA [Concomitant]
     Active Substance: FINGOLIMOD HYDROCHLORIDE
     Dates: end: 20141114
  4. RHINOCORT [Concomitant]
     Active Substance: BUDESONIDE
  5. TYSABRI [Suspect]
     Active Substance: NATALIZUMAB
     Indication: MULTIPLE SCLEROSIS
     Route: 042
     Dates: start: 20140203, end: 20141224
  6. OMEPRAZOL [Concomitant]
     Active Substance: OMEPRAZOLE
  7. NAPROXEN. [Concomitant]
     Active Substance: NAPROXEN
  8. VITAMIN D [Concomitant]
     Active Substance: CHOLECALCIFEROL
  9. CYMBALTA [Concomitant]
     Active Substance: DULOXETINE HYDROCHLORIDE
  10. MODIODAL [Concomitant]
     Active Substance: MODAFINIL
  11. LORATIDIN [Concomitant]
  12. TRADOLAN [Concomitant]
     Active Substance: TRAMADOL

REACTIONS (1)
  - Renal adenoma [Unknown]
